FAERS Safety Report 5776040-7 (Version None)
Quarter: 2008Q2

REPORT INFORMATION
  Report Type: 
  Country: None (occurrence: None)
  Receive Date: 20080617
  Receipt Date: 20080429
  Transmission Date: 20081010
  Serious: Yes (Hospitalization, Disabling, Other)
  Sender: FDA-Public Use
  Company Number: GB-MERCK-0403GBR00052

PATIENT
  Age: 50 Year
  Sex: Female

DRUGS (14)
  1. EZETIMIBE [Suspect]
     Indication: BLOOD CHOLESTEROL INCREASED
     Route: 048
     Dates: start: 20031010, end: 20040123
  2. ATORVASTATIN CALCIUM [Suspect]
     Indication: CORONARY ARTERY DISEASE
     Route: 048
     Dates: start: 20020622, end: 20040123
  3. FUROSEMIDE [Concomitant]
     Route: 065
  4. ISOSORBIDE MONONITRATE [Concomitant]
     Route: 065
  5. ACETAMINOPHEN AND DIHYDROCODEINE BITARTRATE [Concomitant]
     Route: 065
  6. DICLOFENAC [Concomitant]
     Route: 065
     Dates: start: 20030101, end: 20040104
  7. ATENOLOL [Concomitant]
     Route: 065
  8. IBUPROFEN [Concomitant]
     Route: 065
  9. CLOPIDOGREL BISULFATE [Concomitant]
     Route: 065
  10. LEVOTHYROXINE SODIUM [Concomitant]
     Route: 065
  11. LACTULOSE [Concomitant]
     Route: 065
  12. ACETAMINOPHEN [Concomitant]
     Route: 065
  13. DILTIAZEM HYDROCHLORIDE [Concomitant]
     Route: 065
  14. DILTIAZEM HYDROCHLORIDE [Concomitant]
     Route: 065

REACTIONS (4)
  - ABDOMINAL PAIN UPPER [None]
  - DYSPEPSIA [None]
  - HEPATITIS ACUTE [None]
  - VOMITING [None]
